FAERS Safety Report 8078230-X (Version None)
Quarter: 2012Q1

REPORT INFORMATION
  Report Type: 
  Country: None (occurrence: None)
  Receive Date: 20120123
  Receipt Date: 20120113
  Transmission Date: 20120608
  Serious: Yes (Death)
  Sender: FDA-Public Use
  Company Number: 2012IN000055

PATIENT
  Age: 69 Year
  Sex: Male

DRUGS (6)
  1. FOLIC ACID [Concomitant]
  2. LASIX [Concomitant]
  3. PRILOSEC [Concomitant]
  4. ASA (ASA) [Concomitant]
  5. POTASSIUM (POTASSIUM GLUCONATE) [Concomitant]
  6. JAKAFI [Suspect]
     Dosage: 10 MG, BID, ORAL
     Route: 048
     Dates: start: 20111222

REACTIONS (1)
  - DEATH [None]
